FAERS Safety Report 6054390-7 (Version None)
Quarter: 2009Q1

REPORT INFORMATION
  Report Type: 
  Country: None (occurrence: None)
  Receive Date: 20090127
  Receipt Date: 20090119
  Transmission Date: 20090719
  Serious: Yes (Death)
  Sender: FDA-Public Use
  Company Number: US-B.I. PHARMACEUTICALS,INC./RIDGEFIELD-2009-DE-00662GD

PATIENT
  Age: 49 Year
  Sex: Female

DRUGS (5)
  1. MELOXICAM [Suspect]
  2. ACETAMINOPHEN W/ PROPOXYPHENE HCL [Suspect]
     Route: 048
  3. ESCITALOPRAM [Suspect]
  4. BENZODIAZEPINE DERIVATIVES [Suspect]
  5. CELECOXIB [Suspect]

REACTIONS (2)
  - COMPLETED SUICIDE [None]
  - DRUG ABUSE [None]
